FAERS Safety Report 13844495 (Version 1)
Quarter: 2017Q3

REPORT INFORMATION
  Report Type: Spontaneous
  Country: CA (occurrence: CA)
  Receive Date: 20170808
  Receipt Date: 20170808
  Transmission Date: 20171127
  Serious: Yes (Other)
  Sender: FDA-Public Use
  Company Number: CA-BRISTOL-MYERS SQUIBB COMPANY-BMS-2017-069318

PATIENT
  Age: 44 Year
  Sex: Female
  Weight: 72.56 kg

DRUGS (12)
  1. LIPITOR [Concomitant]
     Active Substance: ATORVASTATIN CALCIUM
     Indication: PRODUCT USED FOR UNKNOWN INDICATION
     Route: 065
  2. RISPERDAL [Suspect]
     Active Substance: RISPERIDONE
     Indication: ANXIETY
     Route: 065
  3. EPIVAL                             /00017001/ [Suspect]
     Active Substance: DIAZEPAM
     Indication: SEASONAL AFFECTIVE DISORDER
     Route: 065
  4. ASA [Concomitant]
     Active Substance: ASPIRIN
     Indication: PRODUCT USED FOR UNKNOWN INDICATION
     Route: 065
  5. EPIVAL                             /00017001/ [Suspect]
     Active Substance: DIAZEPAM
     Indication: DEPRESSION
     Route: 065
  6. DETROL [Concomitant]
     Active Substance: TOLTERODINE TARTRATE
     Indication: PRODUCT USED FOR UNKNOWN INDICATION
     Route: 065
  7. ABILIFY [Suspect]
     Active Substance: ARIPIPRAZOLE
     Indication: ANXIETY
     Route: 065
  8. EPIVAL                             /00017001/ [Suspect]
     Active Substance: DIAZEPAM
     Indication: ANXIETY
     Route: 065
  9. ABILIFY [Suspect]
     Active Substance: ARIPIPRAZOLE
     Indication: SEASONAL AFFECTIVE DISORDER
     Route: 065
  10. ABILIFY [Suspect]
     Active Substance: ARIPIPRAZOLE
     Indication: DEPRESSION
     Route: 065
  11. RISPERDAL [Suspect]
     Active Substance: RISPERIDONE
     Indication: SEASONAL AFFECTIVE DISORDER
     Route: 065
  12. RISPERDAL [Suspect]
     Active Substance: RISPERIDONE
     Indication: DEPRESSION
     Route: 065

REACTIONS (10)
  - Weight increased [Unknown]
  - Increased appetite [Unknown]
  - Alopecia [Unknown]
  - Micturition urgency [Unknown]
  - Impaired work ability [Unknown]
  - Myocardial infarction [Unknown]
  - Fatigue [Unknown]
  - Somnolence [Unknown]
  - Urinary incontinence [Unknown]
  - Diabetes mellitus [Unknown]
